FAERS Safety Report 6317029-9 (Version None)
Quarter: 2009Q3

REPORT INFORMATION
  Report Type: 
  Country: None (occurrence: None)
  Receive Date: 20090820
  Receipt Date: 20090812
  Transmission Date: 20100115
  Serious: Yes (Other)
  Sender: FDA-Public Use
  Company Number: CA-GILEAD-2009-0023663

PATIENT
  Age: 56 Year
  Sex: Male

DRUGS (3)
  1. VIREAD [Suspect]
     Indication: HEPATITIS B
  2. LAMIVUDINE [Concomitant]
     Indication: HEPATITIS B
  3. PANTALOC [Concomitant]

REACTIONS (1)
  - MOTOR NEURONE DISEASE [None]
